FAERS Safety Report 6278614-6 (Version None)
Quarter: 2009Q3

REPORT INFORMATION
  Report Type: 
  Country: None (occurrence: None)
  Receive Date: 20090722
  Receipt Date: 20090324
  Transmission Date: 20100115
  Serious: No
  Sender: FDA-Public Use
  Company Number: US-BAUSCH-2009BL001329

PATIENT
  Age: 65 Year
  Sex: Male

DRUGS (5)
  1. OPCON-A [Suspect]
     Indication: HYPERSENSITIVITY
     Route: 047
     Dates: start: 20090323, end: 20090323
  2. PRAVASTATIN [Concomitant]
  3. LEVOTHYROXINE SODIUM [Concomitant]
  4. FEXOFENADINE [Concomitant]
  5. VITAMINS [Concomitant]

REACTIONS (3)
  - DIPLOPIA [None]
  - HALO VISION [None]
  - VISION BLURRED [None]
